FAERS Safety Report 7314229-6 (Version None)
Quarter: 2011Q1

REPORT INFORMATION
  Report Type: 
  Country: None (occurrence: None)
  Receive Date: 20110225
  Receipt Date: 20100706
  Transmission Date: 20110831
  Serious: No
  Sender: FDA-Public Use
  Company Number: US-MYLANLABS-2010S1010561

PATIENT
  Age: 18 Year
  Sex: Male
  Weight: 89.36 kg

DRUGS (3)
  1. AMNESTEEM [Suspect]
     Indication: ACNE CYSTIC
     Route: 048
     Dates: start: 20100101, end: 20100501
  2. CONCERTA [Concomitant]
     Dates: start: 20100603
  3. PAXIL [Concomitant]
     Dates: start: 20100625

REACTIONS (4)
  - EDUCATIONAL PROBLEM [None]
  - CRYING [None]
  - EMOTIONAL DISORDER [None]
  - DEPRESSION [None]
